FAERS Safety Report 7254548-5 (Version None)
Quarter: 2011Q1

REPORT INFORMATION
  Report Type: 
  Country: None (occurrence: None)
  Receive Date: 20110129
  Receipt Date: 20100216
  Transmission Date: 20110831
  Serious: No
  Sender: FDA-Public Use
  Company Number: US-ABBOTT-10P-163-0627583-00

PATIENT
  Sex: Female
  Weight: 59.02 kg

DRUGS (15)
  1. CELEBREX [Concomitant]
     Indication: PAIN
  2. VIT D3 [Concomitant]
     Indication: PRODUCT USED FOR UNKNOWN INDICATION
  3. HYDROCODONE [Concomitant]
     Indication: PAIN
     Dosage: AS REQUIRED 1-4 PER DAY
  4. VIT C [Concomitant]
     Indication: PRODUCT USED FOR UNKNOWN INDICATION
  5. HYDROCHLOROTHIAZIDE [Concomitant]
     Indication: HYPERTENSION
  6. GLUCOSAMINE [Concomitant]
     Indication: PRODUCT USED FOR UNKNOWN INDICATION
  7. HUMIRA [Suspect]
     Indication: RHEUMATOID ARTHRITIS
     Route: 058
     Dates: start: 20060501, end: 20100101
  8. METHOTREXATE [Concomitant]
     Indication: PRODUCT USED FOR UNKNOWN INDICATION
  9. M.V.I. [Concomitant]
     Indication: PRODUCT USED FOR UNKNOWN INDICATION
  10. ALEGRA D [Concomitant]
     Indication: HYPERSENSITIVITY
  11. FOLIC ACID [Concomitant]
     Indication: PRODUCT USED FOR UNKNOWN INDICATION
  12. HUMIRA [Suspect]
     Route: 058
     Dates: start: 20100216
  13. CIPRAPRAM (?) [Concomitant]
     Indication: BACK DISORDER
  14. WARFARIN SODIUM [Concomitant]
     Indication: ANTICOAGULANT THERAPY
  15. GLUCOSAMINE SULFATE [Concomitant]
     Indication: PRODUCT USED FOR UNKNOWN INDICATION

REACTIONS (5)
  - INJECTION SITE PRURITUS [None]
  - OEDEMA PERIPHERAL [None]
  - INJECTION SITE SWELLING [None]
  - INJECTION SITE PAIN [None]
  - DYSPHONIA [None]
